FAERS Safety Report 8806207 (Version 1)
Quarter: 2012Q4

REPORT INFORMATION
  Report Type: Spontaneous
  Country: US (occurrence: None)
  Receive Date: 20120919
  Receipt Date: 20120919
  Transmission Date: 20130627
  Serious: Yes (Life-Threatening, Hospitalization)
  Sender: FDA-Public Use
  Company Number: None

PATIENT
  Age: 60 Year
  Sex: Female
  Weight: 105 kg

DRUGS (1)
  1. AVELOX [Suspect]
     Dosage: 1 tablet 1 per day po
     Route: 048
     Dates: start: 20120915, end: 20120915

REACTIONS (3)
  - Anaphylactic reaction [None]
  - Conversion disorder [None]
  - Diarrhoea [None]
